FAERS Safety Report 13675453 (Version 1)
Quarter: 2017Q2

REPORT INFORMATION
  Report Type: Spontaneous
  Country: US (occurrence: US)
  Receive Date: 20170621
  Receipt Date: 20170621
  Transmission Date: 20170830
  Serious: Yes (Other)
  Sender: FDA-Public Use
  Company Number: US-PFIZER INC-2017272797

PATIENT

DRUGS (3)
  1. SODIUM BICARBONATE. [Suspect]
     Active Substance: SODIUM BICARBONATE
     Dosage: ONE DOSE (ROUTE OF ADMINISTRATION: LEFT TIBIAL INTRAOSSEOUS LINE)
     Route: 064
  2. EPINEPHRINE. [Suspect]
     Active Substance: EPINEPHRINE
     Dosage: MULTIPLE DOSES(ROUTE OF ADMINISTRATION: LEFT TIBIAL INTRAOSSEOUS LINE   )
     Route: 064
  3. METHADONE [Suspect]
     Active Substance: METHADONE HYDROCHLORIDE
     Route: 064

REACTIONS (2)
  - Maternal exposure during pregnancy [Recovered/Resolved]
  - Drug withdrawal syndrome neonatal [Unknown]
